FAERS Safety Report 8589909-5 (Version None)
Quarter: 2012Q3

REPORT INFORMATION
  Report Type: 
  Country: None (occurrence: None)
  Receive Date: 20120813
  Receipt Date: 20120724
  Transmission Date: 20120928
  Serious: Yes (Other)
  Sender: FDA-Public Use
  Company Number: JP-009507513-1208JPN005067

PATIENT

DRUGS (14)
  1. RISPERDAL [Concomitant]
     Indication: SCHIZOPHRENIA
     Dosage: DIVIDED DOSE FREQUENCY U
     Route: 048
  2. ROHYPNOL [Concomitant]
     Indication: SCHIZOPHRENIA
     Dosage: DIVIDED DOSE FREQUENCY U
     Route: 048
  3. AKINETON TABLETS [Concomitant]
     Indication: RHEUMATOID ARTHRITIS
     Dosage: DIVIDED DOSE FREQUENCY U
     Route: 048
  4. MUCOSTA [Concomitant]
     Indication: GASTRITIS PROPHYLAXIS
     Dosage: DIVIDED DOSE FREQUENCY U
     Route: 048
     Dates: start: 20100615
  5. CEPHADOL [Concomitant]
     Indication: PROPHYLAXIS
     Dosage: DIVIDED DOSE FREQUENCY U
     Route: 048
     Dates: start: 20100615
  6. MAGMITT [Concomitant]
     Indication: RHEUMATOID ARTHRITIS
     Dosage: DIVIDED DOSE FREQUENCY U
     Route: 048
  7. INTERFERON BETA NOS [Suspect]
     Indication: HEPATITIS C
     Route: 041
     Dates: start: 20100615, end: 20100618
  8. INTERFERON BETA NOS [Suspect]
     Route: 041
     Dates: start: 20100619, end: 20100710
  9. CLONAZEPAM [Concomitant]
     Indication: SCHIZOPHRENIA
     Dosage: DIVIDED DOSE FREQUENCY U
     Route: 048
  10. LOXONIN [Concomitant]
     Indication: PROPHYLAXIS
     Dosage: DIVIDED DOSE FREQUENCY U
     Route: 048
     Dates: start: 20100615
  11. MERISLON [Concomitant]
     Indication: PROPHYLAXIS
     Dosage: DIVIDED DOSE FREQUENCY U
     Route: 048
     Dates: start: 20100615
  12. REBETOL [Suspect]
     Indication: HEPATITIS C
     Dosage: 200 MG IN THE MORNING AND 400 MG IN THE EVENING
     Route: 048
     Dates: start: 20100615, end: 20101215
  13. TIZANIDINE HYDROCHLORIDE [Concomitant]
     Indication: RHEUMATOID ARTHRITIS
     Dosage: DIVIDED DOSE FREQUENCY U
     Route: 048
  14. INTERFERON BETA NOS [Suspect]
     Route: 041
     Dates: start: 20100712, end: 20101215

REACTIONS (3)
  - INSOMNIA [None]
  - NEUTROPHIL COUNT DECREASED [None]
  - BLOOD TRIGLYCERIDES INCREASED [None]
